FAERS Safety Report 8881798 (Version 1)
Quarter: 2012Q4

REPORT INFORMATION
  Report Type: 
  Country: DK (occurrence: DK)
  Receive Date: 20121102
  Receipt Date: 20121102
  Transmission Date: 20130627
  Serious: Yes (Death)
  Sender: FDA-Public Use
  Company Number: DK-BRISTOL-MYERS SQUIBB COMPANY-17075268

PATIENT
  Age: 50 Year
  Sex: Male

DRUGS (8)
  1. ABILIFY TABS [Suspect]
     Indication: SCHIZOPHRENIA, PARANOID TYPE
     Route: 048
     Dates: start: 20090101
  2. RIVOTRIL [Suspect]
     Indication: SCHIZOPHRENIA, PARANOID TYPE
     Dosage: STYRKE: 0,5 mg
     Route: 048
  3. TRUXAL [Suspect]
     Indication: ANXIETY
     Dosage: STYRKE: 15 mg
     Route: 048
  4. DIAZEPAM [Suspect]
     Indication: ANXIETY
     Dosage: DIAZEPAM ^DAK^ tab
     Route: 048
  5. AMLODIPINE [Suspect]
     Indication: HYPERTENSION
     Dosage: STYRKE: 5 mg
     Route: 048
     Dates: start: 20120918
  6. COZAAR [Suspect]
     Indication: HYPERTENSION
     Dosage: Film coated tab
COZAAR COMP. 100 MG/12,5 MG
     Route: 048
  7. KALEORID [Suspect]
     Dosage: Prolonged-release tablet
     Route: 048
  8. VIAGRA [Suspect]
     Dosage: STYRKE: 100 mg. Dosis: 100 mg ved behov.
Film coated tabs
     Route: 048

REACTIONS (1)
  - Sudden cardiac death [Fatal]
